FAERS Safety Report 25919701 (Version 2)
Quarter: 2025Q4

REPORT INFORMATION
  Report Type: Report from Study
  Country: ZA (occurrence: ZA)
  Receive Date: 20251014
  Receipt Date: 20251111
  Transmission Date: 20260118
  Serious: Yes (Hospitalization, Other)
  Sender: SANOFI AVENTIS
  Company Number: ZA-SA-2025SA237473

PATIENT
  Age: 54 Year
  Sex: Male

DRUGS (2)
  1. INSULIN GLARGINE [Suspect]
     Active Substance: INSULIN GLARGINE
     Indication: Type 2 diabetes mellitus
     Dosage: 34 IU, QD
     Route: 058
     Dates: start: 20250801
  2. INSULIN GLULISINE [Suspect]
     Active Substance: INSULIN GLULISINE
     Indication: Type 2 diabetes mellitus
     Dosage: 10 IU, TID
     Route: 058
     Dates: start: 20250801

REACTIONS (12)
  - Gangrene [Recovered/Resolved with Sequelae]
  - Circulatory collapse [Recovering/Resolving]
  - Peripheral vascular disorder [Not Recovered/Not Resolved]
  - Procedural haemorrhage [Recovering/Resolving]
  - Angioplasty [Recovering/Resolving]
  - Leg amputation [Recovering/Resolving]
  - Sepsis [Recovering/Resolving]
  - Diabetes mellitus inadequate control [Recovering/Resolving]
  - Mobility decreased [Unknown]
  - Blood glucose fluctuation [Unknown]
  - Pain in extremity [Recovering/Resolving]
  - Procedural pain [Unknown]

NARRATIVE: CASE EVENT DATE: 20250101
